FAERS Safety Report 11037872 (Version 1)
Quarter: 2015Q2

REPORT INFORMATION
  Report Type: Spontaneous
  Country: GB (occurrence: None)
  Receive Date: 20150415
  Receipt Date: 20150415
  Transmission Date: 20150821
  Serious: No
  Sender: FDA-Public Use
  Company Number: None

PATIENT
  Age: 26 Year
  Sex: Female

DRUGS (1)
  1. TRIMETHOPRIM. [Suspect]
     Active Substance: TRIMETHOPRIM
     Indication: CYSTITIS
     Dosage: 2 TABLETS A DAY FOR 3 DAYS
     Route: 048

REACTIONS (2)
  - Dry eye [None]
  - Ocular hyperaemia [None]

NARRATIVE: CASE EVENT DATE: 20150414
